FAERS Safety Report 5158790-9 (Version None)
Quarter: 2006Q4

REPORT INFORMATION
  Report Type: 
  Country: None (occurrence: None)
  Receive Date: 20061128
  Receipt Date: 20060822
  Transmission Date: 20070319
  Serious: Yes (Hospitalization)
  Sender: FDA-Public Use
  Company Number: GB-PURDUE-DEU_2006_0002430

PATIENT
  Age: 37 Year
  Sex: Female
  Weight: 84 kg

DRUGS (7)
  1. OXY/NALOXONE VS OXY/PLACEBO CR TAB [Suspect]
     Indication: PAIN
     Dosage: 50 MG, DAILY
     Route: 048
     Dates: start: 20060804
  2. AMITRIPTYLINE HCL [Concomitant]
  3. ACETAMINOPHEN W/ CODEINE [Concomitant]
  4. ESCITALOPRAM [Concomitant]
  5. MELOXICAM [Concomitant]
  6. OMEPRAZOLE [Concomitant]
  7. ROPINIROLE HCL [Concomitant]

REACTIONS (1)
  - BILIARY COLIC [None]
